FAERS Safety Report 24435381 (Version 3)
Quarter: 2025Q3

REPORT INFORMATION
  Report Type: Report from Study
  Country: CA (occurrence: CA)
  Receive Date: 20241015
  Receipt Date: 20250809
  Transmission Date: 20251020
  Serious: Yes (Other)
  Sender: ALEXION PHARMACEUTICALS
  Company Number: CA-AstraZeneca-CH-00721020A

PATIENT
  Sex: Male

DRUGS (2)
  1. ANIFROLUMAB [Suspect]
     Active Substance: ANIFROLUMAB
     Indication: Antibody test positive
     Dosage: 300 MILLIGRAM, Q4W
     Dates: start: 20240807, end: 2024
  2. ANIFROLUMAB [Suspect]
     Active Substance: ANIFROLUMAB
     Indication: Systemic lupus erythematosus

REACTIONS (5)
  - Diverticulitis [Unknown]
  - COVID-19 [Recovering/Resolving]
  - Illness [Recovering/Resolving]
  - Blood glucose decreased [Recovering/Resolving]
  - Infection [Unknown]

NARRATIVE: CASE EVENT DATE: 20240101
